FAERS Safety Report 8807136 (Version 1)
Quarter: 2012Q4

REPORT INFORMATION
  Report Type: 
  Country: TR (occurrence: TR)
  Receive Date: 20120925
  Receipt Date: 20120925
  Transmission Date: 20130627
  Serious: Yes (Death, Other)
  Sender: FDA-Public Use
  Company Number: PHHO2005TR20173

PATIENT
  Sex: Male

DRUGS (1)
  1. GLIVEC [Suspect]
     Indication: CHRONIC MYELOID LEUKAEMIA
     Dosage: 800 mg, UNK
     Route: 048
     Dates: start: 20040805

REACTIONS (5)
  - Death [Fatal]
  - Abasia [Unknown]
  - Generalised oedema [Unknown]
  - Pain [Unknown]
  - Fluid retention [Unknown]
